FAERS Safety Report 4544658-5 (Version None)
Quarter: 2004Q4

REPORT INFORMATION
  Report Type: 
  Country: None (occurrence: None)
  Receive Date: 20041230
  Receipt Date: 20041216
  Transmission Date: 20050328
  Serious: Yes (Hospitalization)
  Sender: FDA-Public Use
  Company Number: 2004UW25659

PATIENT
  Age: 65 Year
  Sex: Male

DRUGS (6)
  1. CRESTOR [Suspect]
     Dosage: 5 MG PO
     Route: 048
     Dates: start: 20040928, end: 20041129
  2. LANOXIN [Concomitant]
  3. LASIX [Concomitant]
  4. ALDACTONE [Concomitant]
  5. PEPCID [Concomitant]
  6. FORADIL [Concomitant]

REACTIONS (9)
  - ATRIAL FIBRILLATION [None]
  - BLEEDING TIME PROLONGED [None]
  - BRADYCARDIA [None]
  - CARDIAC FAILURE CONGESTIVE [None]
  - ELECTROLYTE IMBALANCE [None]
  - GAMMA-GLUTAMYLTRANSFERASE INCREASED [None]
  - MUSCLE RIGIDITY [None]
  - RENAL FAILURE [None]
  - THERAPEUTIC AGENT TOXICITY [None]
